FAERS Safety Report 16971965 (Version 1)
Quarter: 2019Q4

REPORT INFORMATION
  Report Type: Report from Study
  Country: US (occurrence: US)
  Receive Date: 20191029
  Receipt Date: 20191029
  Transmission Date: 20200122
  Serious: Yes (Other)
  Sender: FDA-Public Use
  Company Number: US-PFIZER INC-2019463627

PATIENT
  Age: 51 Year
  Sex: Female

DRUGS (1)
  1. XELJANZ XR [Suspect]
     Active Substance: TOFACITINIB CITRATE
     Dosage: 11 MG
     Dates: start: 20190918

REACTIONS (4)
  - Infection susceptibility increased [Unknown]
  - Oropharyngeal pain [Unknown]
  - Bronchitis [Unknown]
  - Dysphonia [Unknown]

NARRATIVE: CASE EVENT DATE: 2019
